FAERS Safety Report 8866424 (Version 1)
Quarter: 2012Q4

REPORT INFORMATION
  Report Type: 
  Country: US (occurrence: US)
  Receive Date: 20121025
  Receipt Date: 20121025
  Transmission Date: 20130627
  Serious: Yes (Other)
  Sender: FDA-Public Use
  Company Number: US-PFIZER INC-2012265791

PATIENT
  Age: 80 Year
  Sex: Female
  Weight: 61.22 kg

DRUGS (3)
  1. LYRICA [Suspect]
     Indication: NEUROPATHY PERIPHERAL
     Dosage: 25 mg, 1x/day
     Route: 048
     Dates: start: 20120803, end: 20120804
  2. LYRICA [Suspect]
     Indication: SPINAL COLUMN STENOSIS
  3. COUMADINE [Concomitant]
     Indication: ATRIAL FIBRILLATION
     Dosage: UNK

REACTIONS (3)
  - Activities of daily living impaired [Unknown]
  - Somnolence [Unknown]
  - Fatigue [Unknown]
